FAERS Safety Report 8895048 (Version 1)
Quarter: 2012Q4

REPORT INFORMATION
  Report Type: 
  Country: US (occurrence: US)
  Receive Date: 20121107
  Receipt Date: 20121107
  Transmission Date: 20130627
  Serious: Yes (Other)
  Sender: FDA-Public Use
  Company Number: US-AMGEN-USASP2011039351

PATIENT
  Age: 53 Year
  Sex: Female
  Weight: 98.87 kg

DRUGS (3)
  1. ENBREL [Suspect]
     Indication: RHEUMATOID ARTHRITIS
     Dosage: UNK mg, UNK
     Route: 058
     Dates: start: 201110
  2. ENBREL [Suspect]
     Dosage: 50 mg, qwk
     Dates: start: 20080801
  3. TREXALL [Concomitant]
     Dosage: UNK
     Dates: start: 2007, end: 200906

REACTIONS (3)
  - Anaemia [Unknown]
  - Full blood count decreased [Unknown]
  - Platelet count decreased [Unknown]
